FAERS Safety Report 10779611 (Version 1)
Quarter: 2015Q1

REPORT INFORMATION
  Report Type: Spontaneous
  Country: FR (occurrence: FR)
  Receive Date: 20150210
  Receipt Date: 20150210
  Transmission Date: 20150721
  Serious: No
  Sender: FDA-Public Use
  Company Number: FR-JNJFOC-20141215601

PATIENT
  Age: 92 Year
  Sex: Female

DRUGS (2)
  1. DUROGESIC [Suspect]
     Active Substance: FENTANYL
     Indication: PAIN
     Route: 062
  2. DUROGESIC [Suspect]
     Active Substance: FENTANYL
     Indication: PAIN
     Dosage: HALF OF 12.5 UG/HR
     Route: 062

REACTIONS (3)
  - Wrong technique in drug usage process [Unknown]
  - Drug prescribing error [Unknown]
  - Sedation [Recovered/Resolved]
